FAERS Safety Report 14390003 (Version 2)
Quarter: 2018Q1

REPORT INFORMATION
  Report Type: Spontaneous
  Country: GB (occurrence: GB)
  Receive Date: 20180115
  Receipt Date: 20180321
  Transmission Date: 20180509
  Serious: Yes (Other)
  Sender: FDA-Public Use
  Company Number: GB-AMGEN-GBRSP2018002902

PATIENT
  Age: 78 Year
  Sex: Female

DRUGS (1)
  1. ENBREL [Suspect]
     Active Substance: ETANERCEPT
     Indication: PRODUCT USED FOR UNKNOWN INDICATION
     Dosage: 50 MG, FORTNIGHTLY
     Route: 058

REACTIONS (5)
  - Upper limb fracture [Unknown]
  - Nasopharyngitis [Recovering/Resolving]
  - Lower respiratory tract infection [Unknown]
  - Product use issue [Unknown]
  - Fall [Unknown]
